FAERS Safety Report 13340660 (Version 1)
Quarter: 2017Q1

REPORT INFORMATION
  Report Type: Spontaneous
  Country: US (occurrence: US)
  Receive Date: 20170315
  Receipt Date: 20170315
  Transmission Date: 20170428
  Serious: Yes (Other)
  Sender: FDA-Public Use
  Company Number: None

PATIENT
  Age: 74 Year
  Sex: Female
  Weight: 74.25 kg

DRUGS (7)
  1. GAVILYTE - C [Suspect]
     Active Substance: POLYETHYLENE GLYCOL 3350\POTASSIUM CHLORIDE\SODIUM BICARBONATE\SODIUM CHLORIDE\SODIUM SULFATE ANHYDROUS
     Indication: COLONOSCOPY
     Dosage: ?          QUANTITY:1 4 LITERS;OTHER FREQUENCY:OVER 4 HOURS;?
     Route: 048
     Dates: start: 20170312, end: 20170313
  2. CENTRUM SILVER [Concomitant]
     Active Substance: MINERALS\VITAMINS
  3. ALFALFA [Concomitant]
     Active Substance: ALFALFA
  4. CALCIUM+D [Concomitant]
     Active Substance: CALCIUM\VITAMIN D
  5. OMEGA 3 OIL [Concomitant]
  6. ATENOLOL. [Concomitant]
     Active Substance: ATENOLOL
  7. ASPIRIN. [Concomitant]
     Active Substance: ASPIRIN

REACTIONS (5)
  - Sensation of foreign body [None]
  - Heart rate increased [None]
  - Heart rate irregular [None]
  - Throat tightness [None]
  - Pollakiuria [None]

NARRATIVE: CASE EVENT DATE: 20170314
